FAERS Safety Report 12499346 (Version 1)
Quarter: 2016Q2

REPORT INFORMATION
  Report Type: Report from Study
  Country: US (occurrence: US)
  Receive Date: 20160627
  Receipt Date: 20160627
  Transmission Date: 20160815
  Serious: Yes (Hospitalization)
  Sender: FDA-Public Use
  Company Number: US-BAYER-2016-110775

PATIENT
  Age: 50 Year
  Sex: Male

DRUGS (5)
  1. LISINOPRIL. [Concomitant]
     Active Substance: LISINOPRIL
     Dosage: 40 MG, QD
  2. REGORAFENIB [Suspect]
     Active Substance: REGORAFENIB
     Indication: THYROID CANCER METASTATIC
     Dosage: 120 MG, QD
     Route: 048
     Dates: start: 20160519, end: 20160602
  3. REGORAFENIB [Suspect]
     Active Substance: REGORAFENIB
     Indication: THYROID CANCER METASTATIC
     Dosage: 160 MG, QD
     Route: 048
     Dates: start: 20160421, end: 20160505
  4. AMLODIPINE [Concomitant]
     Active Substance: AMLODIPINE BESYLATE
     Dosage: DOSE 5MG
  5. CLOBETASOL [Concomitant]
     Active Substance: CLOBETASOL

REACTIONS (3)
  - Blood creatinine increased [Recovered/Resolved]
  - Hypertension [Recovered/Resolved]
  - Dehydration [Recovered/Resolved]

NARRATIVE: CASE EVENT DATE: 20160602
